FAERS Safety Report 12193767 (Version 1)
Quarter: 2016Q1

REPORT INFORMATION
  Report Type: Report from Study
  Country: US (occurrence: US)
  Receive Date: 20160321
  Receipt Date: 20160321
  Transmission Date: 20160526
  Serious: Yes (Other)
  Sender: FDA-Public Use
  Company Number: US-ROCHE-1727244

PATIENT

DRUGS (2)
  1. DIAZEPAM. [Suspect]
     Active Substance: DIAZEPAM
     Indication: SEDATION
     Route: 065
  2. MIDAZOLAM [Suspect]
     Active Substance: MIDAZOLAM\MIDAZOLAM HYDROCHLORIDE
     Indication: SEDATION
     Route: 065

REACTIONS (8)
  - Laryngospasm [Unknown]
  - Delayed recovery from anaesthesia [Unknown]
  - Vomiting [Unknown]
  - Arrhythmia [Unknown]
  - Bronchospasm [Unknown]
  - Vascular injury [Unknown]
  - Syncope [Unknown]
  - Respiratory arrest [Unknown]
